FAERS Safety Report 19973500 (Version 3)
Quarter: 2021Q4

REPORT INFORMATION
  Report Type: Spontaneous
  Country: US (occurrence: US)
  Receive Date: 20211020
  Receipt Date: 20211208
  Transmission Date: 20220303
  Serious: No
  Sender: FDA-Public Use
  Company Number: US-GILEAD-2021-0553251

PATIENT
  Age: 58 Year
  Sex: Male

DRUGS (10)
  1. VEMLIDY [Suspect]
     Active Substance: TENOFOVIR ALAFENAMIDE FUMARATE
     Indication: Chronic hepatitis B
     Dosage: 25 MG, QD
     Route: 048
  2. ALAWAY [Concomitant]
     Active Substance: KETOTIFEN FUMARATE
  3. AZELASTINE HYDROCHLORIDE [Concomitant]
     Active Substance: AZELASTINE HYDROCHLORIDE
  4. ENTECAVIR [Concomitant]
     Active Substance: ENTECAVIR
  5. FLONASE [Concomitant]
     Active Substance: FLUTICASONE PROPIONATE
  6. GINKGO [Concomitant]
     Active Substance: GINKGO
  7. EQUATE ALLERGY RELIEF [LORATADINE] [Concomitant]
  8. FISH OIL [Concomitant]
     Active Substance: FISH OIL
  9. FLOMAX [Concomitant]
     Active Substance: TAMSULOSIN HYDROCHLORIDE
  10. LORATADINE [Concomitant]
     Active Substance: LORATADINE

REACTIONS (3)
  - Dry mouth [Not Recovered/Not Resolved]
  - Product dose omission issue [Unknown]
  - Product use issue [Not Recovered/Not Resolved]
